FAERS Safety Report 10664637 (Version 1)
Quarter: 2014Q4

REPORT INFORMATION
  Report Type: Spontaneous
  Country: US (occurrence: US)
  Receive Date: 20141219
  Receipt Date: 20141219
  Transmission Date: 20150529
  Serious: Yes (Other)
  Sender: FDA-Public Use
  Company Number: US-PFIZER INC-2014340144

PATIENT
  Age: 73 Year
  Sex: Female
  Weight: 73 kg

DRUGS (1)
  1. CHILDRENS DIMETAPP COLD AND COUGH [Suspect]
     Active Substance: BROMPHENIRAMINE MALEATE\DEXTROMETHORPHAN HYDROBROMIDE\PHENYLEPHRINE HYDROCHLORIDE
     Dosage: 4 DF, 1X/DAY
     Route: 048
     Dates: start: 20141205, end: 20141207

REACTIONS (4)
  - Eye haemorrhage [Not Recovered/Not Resolved]
  - Intentional product misuse [Unknown]
  - Blood pressure increased [Unknown]
  - Ocular hyperaemia [Not Recovered/Not Resolved]

NARRATIVE: CASE EVENT DATE: 201412
